FAERS Safety Report 5362346-2 (Version None)
Quarter: 2007Q2

REPORT INFORMATION
  Report Type: 
  Country: None (occurrence: None)
  Receive Date: 20070619
  Receipt Date: 20070612
  Transmission Date: 20071010
  Serious: Yes (Other)
  Sender: FDA-Public Use
  Company Number: US-ELI_LILLY_AND_COMPANY-US200706002722

PATIENT
  Age: 60 Year
  Sex: Female

DRUGS (22)
  1. BYETTA [Suspect]
     Indication: DIABETES MELLITUS NON-INSULIN-DEPENDENT
     Dosage: 5 UG, OTHER
     Route: 058
     Dates: start: 20070606, end: 20070606
  2. METFORMIN HCL [Concomitant]
     Indication: DIABETES MELLITUS
     Dosage: 1000 MG, 2/D
     Route: 048
  3. ATENOLOL [Concomitant]
     Indication: ARRHYTHMIA
     Dosage: 100 MG, DAILY (1/D)
     Route: 048
  4. AVANDIA [Concomitant]
     Indication: DIABETES MELLITUS
     Dosage: 4 MG, 2/D
     Route: 048
  5. GLIPIZIDE [Concomitant]
     Indication: DIABETES MELLITUS
     Dosage: UNK, UNKNOWN
     Dates: end: 20070603
  6. NEXIUM [Concomitant]
     Indication: GASTROOESOPHAGEAL REFLUX DISEASE
     Dosage: UNK, UNKNOWN
  7. METOCLOPRAMIDE [Concomitant]
     Indication: GASTRIC PH DECREASED
     Dosage: UNK, UNKNOWN
  8. PLAVIX [Concomitant]
     Dosage: UNK, UNKNOWN
  9. METRONIDAZOLE [Concomitant]
     Indication: DIARRHOEA
     Dosage: 500 MG, 2/D
     Route: 048
  10. EVOXAC [Concomitant]
     Indication: CONNECTIVE TISSUE DISORDER
     Dosage: UNK, UNKNOWN
  11. LOPERAMIDE HCL [Concomitant]
     Indication: DIARRHOEA
     Dosage: 2 MG, UNKNOWN
  12. LIPITOR [Concomitant]
     Indication: BLOOD CHOLESTEROL
     Dosage: UNK, UNKNOWN
  13. FLUOXETINE [Concomitant]
     Dosage: 40 MG, DAILY (1/D)
     Route: 048
  14. CARBAMAZEPINE [Concomitant]
     Indication: CONVULSION
     Dosage: UNK, UNKNOWN
  15. ALPRAZOLAM [Concomitant]
     Indication: PANIC DISORDER
     Dosage: UNK, UNKNOWN
  16. TEMAZEPAM [Concomitant]
     Indication: INSOMNIA
     Dosage: UNK, UNKNOWN
  17. BION TEARS [Concomitant]
     Indication: DRY EYE
     Dosage: UNK, UNKNOWN
  18. PHENAZOPYRIDINE HCL TAB [Concomitant]
     Indication: BLADDER SPASM
     Dosage: UNK, AS NEEDED
  19. IMITREX [Concomitant]
     Indication: MIGRAINE
     Dosage: UNK, AS NEEDED
  20. ALL OTHER THERAPEUTIC PRODUCTS [Concomitant]
     Indication: NAUSEA
     Dosage: UNK, AS NEEDED
  21. NITROGLYCERIN [Concomitant]
     Dosage: UNK, AS NEEDED
     Route: 060
  22. DIPHENHYDRAMINE HCL [Concomitant]
     Indication: HYPERSENSITIVITY
     Dosage: 50 MG, AS NEEDED

REACTIONS (5)
  - DIZZINESS [None]
  - HEART RATE INCREASED [None]
  - HEART RATE IRREGULAR [None]
  - PRESYNCOPE [None]
  - SYNCOPE [None]
